FAERS Safety Report 22914837 (Version 2)
Quarter: 2024Q1

REPORT INFORMATION
  Report Type: Report from Study
  Country: CA (occurrence: CA)
  Receive Date: 20230907
  Receipt Date: 20240112
  Transmission Date: 20240410
  Serious: Yes (Hospitalization, Other)
  Sender: FDA-Public Use
  Company Number: CA-ABBVIE-5396221

PATIENT
  Age: 99 Year
  Sex: Male

DRUGS (1)
  1. LUPRON DEPOT [Suspect]
     Active Substance: LEUPROLIDE ACETATE
     Indication: Prostate cancer
     Route: 030
     Dates: start: 20200522

REACTIONS (8)
  - Electrolyte imbalance [Unknown]
  - Asthenia [Recovered/Resolved]
  - Unevaluable event [Recovered/Resolved]
  - Unevaluable event [Recovered/Resolved]
  - Speech disorder [Unknown]
  - Unevaluable event [Unknown]
  - Depressed level of consciousness [Unknown]
  - Gait inability [Unknown]

NARRATIVE: CASE EVENT DATE: 20230714
